FAERS Safety Report 9342236 (Version 3)
Quarter: 2014Q2

REPORT INFORMATION
  Report Type: Spontaneous
  Country: US (occurrence: US)
  Receive Date: 20130611
  Receipt Date: 20140502
  Transmission Date: 20141212
  Serious: Yes (Hospitalization)
  Sender: FDA-Public Use
  Company Number: US-BIOGENIDEC-2013BI051785

PATIENT
  Age: 24 Year
  Sex: Female

DRUGS (5)
  1. AVONEX [Suspect]
     Indication: MULTIPLE SCLEROSIS
     Route: 030
  2. AVONEX [Suspect]
     Indication: MULTIPLE SCLEROSIS
     Route: 030
     Dates: start: 20130425, end: 20130425
  3. AVONEX [Suspect]
     Indication: MULTIPLE SCLEROSIS
     Route: 030
  4. AVONEX [Suspect]
     Indication: MULTIPLE SCLEROSIS
     Route: 030
     Dates: start: 20130606
  5. COPAXONE [Concomitant]
     Dates: start: 201305

REACTIONS (33)
  - Blood pressure increased [Unknown]
  - Erythema [Unknown]
  - Lethargy [Unknown]
  - Injection site bruising [Unknown]
  - Logorrhoea [Unknown]
  - Mouth swelling [Unknown]
  - Tremor [Unknown]
  - Fluid intake reduced [Unknown]
  - Aphagia [Unknown]
  - Feeling cold [Unknown]
  - Vomiting [Unknown]
  - Chills [Unknown]
  - Injection site pain [Unknown]
  - Presyncope [Unknown]
  - Pruritus [Unknown]
  - Feeling hot [Unknown]
  - Injection site reaction [Unknown]
  - Headache [Unknown]
  - Multiple sclerosis [Unknown]
  - Drug dose omission [Recovered/Resolved]
  - Mobility decreased [Recovered/Resolved]
  - Dysphemia [Recovered/Resolved]
  - Dysarthria [Recovered/Resolved]
  - Somnolence [Not Recovered/Not Resolved]
  - Adverse drug reaction [Unknown]
  - Abasia [Unknown]
  - Injection site scar [Unknown]
  - Gastritis [Unknown]
  - Ulcer [Unknown]
  - Fatigue [Unknown]
  - Pain [Recovered/Resolved]
  - Diarrhoea [Recovered/Resolved]
  - Drug ineffective [Unknown]
